FAERS Safety Report 21713322 (Version 4)
Quarter: 2023Q1

REPORT INFORMATION
  Report Type: Report from Study
  Country: US (occurrence: US)
  Receive Date: 20221212
  Receipt Date: 20230215
  Transmission Date: 20230418
  Serious: Yes (Death, Other)
  Sender: FDA-Public Use
  Company Number: US-GSKCCFUS-Case-01575748_AE-89060

PATIENT

DRUGS (2)
  1. BELANTAMAB MAFODOTIN [Suspect]
     Active Substance: BELANTAMAB MAFODOTIN
     Indication: Amyloidosis
     Dosage: UNK
     Dates: start: 20220630, end: 202208
  2. SYSTANE HYDRATION PF PRESERVATIVE FREE [Suspect]
     Active Substance: POLYETHYLENE GLYCOL 400\PROPYLENE GLYCOL
     Indication: Dry eye
     Dosage: UNK

REACTIONS (7)
  - Amyloidosis [Fatal]
  - Hypotension [Fatal]
  - Punctate keratitis [Not Recovered/Not Resolved]
  - Keratopathy [Recovering/Resolving]
  - Dry eye [Recovering/Resolving]
  - Night blindness [Recovered/Resolved]
  - Product use in unapproved indication [Unknown]

NARRATIVE: CASE EVENT DATE: 20220804
